FAERS Safety Report 17060449 (Version 2)
Quarter: 2020Q4

REPORT INFORMATION
  Report Type: Spontaneous
  Country: JP (occurrence: JP)
  Receive Date: 20191121
  Receipt Date: 20201118
  Transmission Date: 20210113
  Serious: Yes (Death, Other)
  Sender: FDA-Public Use
  Company Number: JP-ASTRAZENECA-2019SE61995

PATIENT
  Age: 69 Year
  Sex: Male

DRUGS (26)
  1. TRAZODONE HYDROCHLORIDE. [Suspect]
     Active Substance: TRAZODONE HYDROCHLORIDE
     Indication: PERSISTENT DEPRESSIVE DISORDER
     Route: 048
     Dates: end: 20190506
  2. FLUNITRAZEPAM [Suspect]
     Active Substance: FLUNITRAZEPAM
     Indication: INSOMNIA
     Route: 048
     Dates: end: 20190506
  3. SODIUM VALPROATE [Suspect]
     Active Substance: VALPROATE SODIUM
     Indication: PERSISTENT DEPRESSIVE DISORDER
     Route: 048
     Dates: end: 20190506
  4. E KEPPRA [Concomitant]
     Active Substance: LEVETIRACETAM
     Indication: BRAIN NEOPLASM
     Route: 048
  5. AMBROXOL HYDROCHLORIDE [Concomitant]
     Active Substance: AMBROXOL HYDROCHLORIDE
     Indication: SPUTUM RETENTION
     Route: 048
     Dates: start: 20190428, end: 20190501
  6. TAGRISSO [Suspect]
     Active Substance: OSIMERTINIB
     Indication: NON-SMALL CELL LUNG CANCER
     Route: 048
     Dates: start: 20190316, end: 20190404
  7. JANUVIA [Concomitant]
     Active Substance: SITAGLIPTIN PHOSPHATE
     Indication: DIABETES MELLITUS
     Route: 048
     Dates: end: 20190509
  8. MECOBALAMIN [Concomitant]
     Active Substance: METHYLCOBALAMIN
     Indication: PERSISTENT DEPRESSIVE DISORDER
     Route: 048
     Dates: end: 20190509
  9. ISCOTIN [Concomitant]
     Active Substance: ISONIAZID
     Indication: PULMONARY TUBERCULOSIS
     Route: 048
     Dates: start: 20180920, end: 20190509
  10. RIFAMPICIN [Concomitant]
     Active Substance: RIFAMPIN
     Indication: PULMONARY TUBERCULOSIS
     Route: 048
     Dates: start: 20180920, end: 20190410
  11. BELSOMRA [Suspect]
     Active Substance: SUVOREXANT
     Indication: INSOMNIA
     Route: 048
     Dates: end: 20190506
  12. KETOPROFEN. [Concomitant]
     Active Substance: KETOPROFEN
     Indication: BACK PAIN
     Route: 048
     Dates: start: 20190330
  13. TAGRISSO [Suspect]
     Active Substance: OSIMERTINIB
     Indication: NON-SMALL CELL LUNG CANCER
     Route: 048
     Dates: start: 20190419, end: 20190427
  14. LANDSEN [Suspect]
     Active Substance: CLONAZEPAM
     Indication: PERSISTENT DEPRESSIVE DISORDER
     Dosage: 0.5MG UNKNOWN
     Route: 048
     Dates: end: 20190506
  15. AMLODIPINE [Concomitant]
     Active Substance: AMLODIPINE BESYLATE
     Indication: HYPERTENSION
     Route: 048
     Dates: end: 20190509
  16. TAGRISSO [Suspect]
     Active Substance: OSIMERTINIB
     Indication: NON-SMALL CELL LUNG CANCER
     Route: 048
     Dates: start: 20190510, end: 20190521
  17. ARIPIPRAZOLE. [Suspect]
     Active Substance: ARIPIPRAZOLE
     Indication: PERSISTENT DEPRESSIVE DISORDER
     Route: 048
     Dates: end: 20190509
  18. TEPRENONE [Concomitant]
     Active Substance: TEPRENONE
     Indication: PERSISTENT DEPRESSIVE DISORDER
     Route: 048
     Dates: end: 20190509
  19. PYDOXAL [Concomitant]
     Active Substance: PYRIDOXAL
     Indication: PULMONARY TUBERCULOSIS
     Route: 048
     Dates: start: 20180920, end: 20190509
  20. TRANEXAMIC ACID. [Concomitant]
     Active Substance: TRANEXAMIC ACID
     Indication: HAEMOPTYSIS
     Route: 042
     Dates: start: 20190504, end: 20190507
  21. TAGRISSO [Suspect]
     Active Substance: OSIMERTINIB
     Indication: NON-SMALL CELL LUNG CANCER
     Route: 048
     Dates: start: 20190326, end: 20190404
  22. MAGMITT [Concomitant]
     Active Substance: MAGNESIUM OXIDE
     Indication: CONSTIPATION
     Dosage: 330MG AFTER BREAKFAST, 660MG BEFORE BEDTIME
     Route: 048
     Dates: end: 20190509
  23. LACTEC [Concomitant]
     Active Substance: CALCIUM CHLORIDE ANHYDROUS\POTASSIUM CHLORIDE\SODIUM CHLORIDE\SODIUM LACTATE
     Indication: HYPOPHAGIA
     Route: 042
     Dates: start: 20190426, end: 20190428
  24. CARBAZOCHROME SULFONATE NA [Concomitant]
     Indication: HAEMOPTYSIS
     Route: 042
     Dates: start: 20190504, end: 20190507
  25. TAGRISSO [Suspect]
     Active Substance: OSIMERTINIB
     Indication: NON-SMALL CELL LUNG CANCER
     Route: 048
     Dates: start: 20190509, end: 20190519
  26. PHYSIO 35 [Concomitant]
     Active Substance: ELECTROLYTES NOS
     Indication: HYPOPHAGIA
     Route: 042
     Dates: start: 20190429, end: 20190502

REACTIONS (15)
  - Sputum retention [Unknown]
  - Sputum increased [Unknown]
  - Pneumonia aspiration [Fatal]
  - Oxygen saturation abnormal [Not Recovered/Not Resolved]
  - Bacterial infection [Unknown]
  - Psychiatric symptom [Not Recovered/Not Resolved]
  - Interstitial lung disease [Unknown]
  - Lung disorder [Not Recovered/Not Resolved]
  - Asphyxia [Unknown]
  - Vomiting [Unknown]
  - Metastases to central nervous system [Unknown]
  - Somnolence [Unknown]
  - Malaise [Recovering/Resolving]
  - General physical health deterioration [Unknown]
  - Urinary incontinence [Unknown]

NARRATIVE: CASE EVENT DATE: 2019
